FAERS Safety Report 7820026-5 (Version None)
Quarter: 2011Q4

REPORT INFORMATION
  Report Type: 
  Country: None (occurrence: None)
  Receive Date: 20111018
  Receipt Date: 20111007
  Transmission Date: 20120403
  Serious: Yes (Hospitalization, Other)
  Sender: FDA-Public Use
  Company Number: PHFR2011GB03970

PATIENT
  Sex: Male

DRUGS (1)
  1. CLOZARIL [Suspect]
     Indication: SCHIZOPHRENIA
     Route: 048
     Dates: start: 20110428, end: 20110630

REACTIONS (4)
  - RESPIRATORY ARREST [None]
  - CONVULSION [None]
  - METABOLIC DISORDER [None]
  - ANTIPSYCHOTIC DRUG LEVEL INCREASED [None]
